FAERS Safety Report 7915050-8 (Version None)
Quarter: 2011Q4

REPORT INFORMATION
  Report Type: 
  Country: None (occurrence: None)
  Receive Date: 20111115
  Receipt Date: 20111109
  Transmission Date: 20120403
  Serious: Yes (Hospitalization)
  Sender: FDA-Public Use
  Company Number: US-BRISTOL-MYERS SQUIBB COMPANY-15221781

PATIENT
  Age: 68 Year
  Sex: Male

DRUGS (13)
  1. AVALIDE [Concomitant]
     Dosage: DOSAGE:300/25 HALF-TAB
     Route: 048
     Dates: start: 20070601
  2. EFFEXOR [Concomitant]
     Dosage: DOSAGE:IN MORNING
     Dates: start: 20060615
  3. ZOCOR [Concomitant]
     Route: 048
     Dates: start: 20070601
  4. ATIVAN [Concomitant]
  5. ASPIRIN [Concomitant]
     Dosage: DOSAGE:AT BED TIME
     Route: 048
     Dates: start: 20080601
  6. REMERON [Concomitant]
     Route: 048
     Dates: start: 20100215
  7. MULTI-VITAMIN [Concomitant]
     Dosage: 1 DF:1 UNIT NOT SPECIFIED
     Route: 048
     Dates: start: 20000615
  8. EFFEXOR XR [Concomitant]
     Dates: start: 20060601
  9. BUSPAR [Concomitant]
     Dosage: DOSAGE:2TABS/4/DAY ALSO 15JUN2008
     Dates: start: 20080601
  10. ZYPREXA [Concomitant]
     Dosage: DOSAGGE:AT BEDTIME
     Route: 048
     Dates: start: 20060601
  11. AMBIEN [Concomitant]
     Dosage: 15JUN2005, PRN
     Dates: start: 20050601
  12. IPILIMUMAB [Suspect]
     Indication: MALIGNANT MELANOMA
     Dosage: 3MG/KG
     Route: 042
     Dates: start: 20100512
  13. FLOMAX [Concomitant]
     Route: 048
     Dates: start: 20090615

REACTIONS (2)
  - HYPONATRAEMIA [None]
  - NEOPLASM MALIGNANT [None]
